FAERS Safety Report 8105693-3 (Version None)
Quarter: 2012Q1

REPORT INFORMATION
  Report Type: 
  Country: None (occurrence: None)
  Receive Date: 20120201
  Receipt Date: 20120124
  Transmission Date: 20120608
  Serious: Yes (Other)
  Sender: FDA-Public Use
  Company Number: US-ELI_LILLY_AND_COMPANY-US201201008452

PATIENT
  Sex: Female

DRUGS (3)
  1. NOVOLOG [Concomitant]
  2. HUMALOG [Suspect]
     Indication: TYPE 2 DIABETES MELLITUS
     Dosage: UNK, TID
  3. HUMALOG [Suspect]
     Dosage: UNK, TID

REACTIONS (3)
  - EYE HAEMORRHAGE [None]
  - DIABETIC RETINOPATHY [None]
  - INCORRECT DOSE ADMINISTERED [None]
